FAERS Safety Report 8244372 (Version 3)
Quarter: 2013Q4

REPORT INFORMATION
  Report Type: Spontaneous
  Country: GB (occurrence: None)
  Receive Date: 20111108
  Receipt Date: 20131104
  Transmission Date: 20140711
  Serious: Yes (Hospitalization)
  Sender: FDA-Public Use
  Company Number: 2011263440

PATIENT
  Age: 53 Year
  Sex: Female

DRUGS (3)
  1. DALTEPARIN SODIUM [Suspect]
     Indication: LUNG NEOPLASM MALIGNANT
     Dosage: 5000 IU, 1X/DAY
     Dates: start: 20110601
  2. CISPLATIN [Suspect]
     Dosage: 110 MG, DAILY, INTRAVENOUS
     Route: 042
     Dates: start: 20110601
  3. ALIMTA [Suspect]
     Dosage: 750 MG, DAILY, INTRAVENOUS
     Route: 042
     Dates: start: 20110601

REACTIONS (2)
  - Abdominal pain upper [None]
  - Nausea [None]
